FAERS Safety Report 13300317 (Version 3)
Quarter: 2017Q2

REPORT INFORMATION
  Report Type: Report from Study
  Country: IT (occurrence: IT)
  Receive Date: 20170307
  Receipt Date: 20170426
  Transmission Date: 20170830
  Serious: Yes (Hospitalization)
  Sender: FDA-Public Use
  Company Number: IT-009507513-1703ITA001879

PATIENT
  Age: 40 Year
  Sex: Female

DRUGS (4)
  1. PERPHENAZINE. [Suspect]
     Active Substance: PERPHENAZINE
     Dosage: 8 DOSE (UNIT) TOTAL
     Route: 048
     Dates: start: 20161013, end: 20161013
  2. CYMBALTA [Suspect]
     Active Substance: DULOXETINE HYDROCHLORIDE
     Dosage: 600 MG TOTAL
     Route: 048
     Dates: start: 20161013, end: 20161013
  3. CYMBALTA [Suspect]
     Active Substance: DULOXETINE HYDROCHLORIDE
     Dosage: 1 DF, QD
     Route: 048
  4. PERPHENAZINE. [Suspect]
     Active Substance: PERPHENAZINE
     Dosage: 1 DOSE (UNIT) IN THE MORNING AND TWO DOSE (UNIT) IN THE EVENING
     Route: 048

REACTIONS (1)
  - Drug use disorder [Unknown]

NARRATIVE: CASE EVENT DATE: 20161013
